FAERS Safety Report 12165038 (Version 1)
Quarter: 2016Q1

REPORT INFORMATION
  Report Type: Spontaneous
  Country: US (occurrence: US)
  Receive Date: 20160309
  Receipt Date: 20160309
  Transmission Date: 20160526
  Serious: No
  Sender: FDA-Public Use
  Company Number: US-ABBVIE-15P-163-1403098-00

PATIENT
  Age: 41 Year
  Sex: Female
  Weight: 85.81 kg

DRUGS (3)
  1. LUPRON DEPOT [Suspect]
     Active Substance: LEUPROLIDE ACETATE
     Indication: ENDOMETRIOSIS
     Route: 030
     Dates: start: 20150528
  2. THRIVE LIFE STYLE DFT OVER THE COUNTER [Concomitant]
     Indication: NUTRITIONAL SUPPLEMENTATION
     Dates: start: 20150513
  3. NORETHINDRONE ACETATE. [Suspect]
     Active Substance: NORETHINDRONE ACETATE
     Indication: PROGESTIN REPLACEMENT THERAPY
     Route: 048
     Dates: start: 20150528

REACTIONS (6)
  - Blood pressure increased [Not Recovered/Not Resolved]
  - Dyspnoea [Not Recovered/Not Resolved]
  - Chest discomfort [Not Recovered/Not Resolved]
  - Initial insomnia [Not Recovered/Not Resolved]
  - Vision blurred [Recovered/Resolved]
  - Hot flush [Not Recovered/Not Resolved]

NARRATIVE: CASE EVENT DATE: 201505
